FAERS Safety Report 4531417-2 (Version None)
Quarter: 2004Q4

REPORT INFORMATION
  Report Type: 
  Country: None (occurrence: None)
  Receive Date: 20041216
  Receipt Date: 20041201
  Transmission Date: 20050328
  Serious: Yes (Hospitalization)
  Sender: FDA-Public Use
  Company Number: 2004RL000046

PATIENT
  Age: 88 Year
  Sex: Female

DRUGS (6)
  1. RYTHMOL [Suspect]
     Indication: ARRHYTHMIA
     Dosage: 450 MG; TID; PO
     Route: 048
     Dates: start: 19980101, end: 20040127
  2. ACETYLSALICYLIC ACID [Concomitant]
  3. SERETIDE ^GLAXO WELLCOME^ [Concomitant]
  4. OMEPRAZOLE [Concomitant]
  5. DELORAZEPAM [Concomitant]
  6. ACETAMINOPHEN [Concomitant]

REACTIONS (1)
  - BRONCHOSPASM [None]
